FAERS Safety Report 15955582 (Version 3)
Quarter: 2019Q3

REPORT INFORMATION
  Report Type: Spontaneous
  Country: JP (occurrence: JP)
  Receive Date: 20190213
  Receipt Date: 20190919
  Transmission Date: 20191004
  Serious: Yes (Other)
  Sender: FDA-Public Use
  Company Number: PHJP2019JP001714

PATIENT

DRUGS (4)
  1. GLIVEC [Suspect]
     Active Substance: IMATINIB MESYLATE
     Indication: MATERNAL EXPOSURE BEFORE PREGNANCY
     Dosage: MOTHER DOSE: 400 MG, QD
     Route: 064
     Dates: start: 201411
  2. GLIVEC [Suspect]
     Active Substance: IMATINIB MESYLATE
     Dosage: MOTHER DOSE: 100 MG, UNK
     Route: 064
     Dates: start: 20170901
  3. GLIVEC [Suspect]
     Active Substance: IMATINIB MESYLATE
     Dosage: MOTHER DOSE: 600 MG, QD
     Route: 064
     Dates: start: 201411
  4. GLIVEC [Suspect]
     Active Substance: IMATINIB MESYLATE
     Dosage: DOSE GIVEN TO MOTHER: SMALL AMOUNT (AT PATIENT^S DISCRETION)
     Route: 064
     Dates: end: 20160615

REACTIONS (1)
  - Premature baby [Unknown]

NARRATIVE: CASE EVENT DATE: 20170809
